FAERS Safety Report 9228676 (Version 1)
Quarter: 2013Q2

REPORT INFORMATION
  Report Type: Spontaneous
  Country: US (occurrence: US)
  Receive Date: 20130412
  Receipt Date: 20130412
  Transmission Date: 20140414
  Serious: Yes (Other)
  Sender: FDA-Public Use
  Company Number: US-BRISTOL-MYERS SQUIBB COMPANY-17482258

PATIENT
  Age: 68 Year
  Sex: Male
  Weight: 52.15 kg

DRUGS (6)
  1. ERBITUX [Suspect]
     Indication: LIP AND/OR ORAL CAVITY CANCER
     Dates: start: 20121228
  2. TAXOL [Suspect]
  3. FENTANYL PATCH [Concomitant]
  4. OXYCODONE [Concomitant]
  5. TYLENOL [Concomitant]
  6. NYSTATIN MOUTHWASH [Concomitant]

REACTIONS (5)
  - Tendon rupture [Unknown]
  - Scab [Unknown]
  - Pruritus [Unknown]
  - Rash [Unknown]
  - Candida infection [Unknown]
